FAERS Safety Report 13620865 (Version 1)
Quarter: 2017Q2

REPORT INFORMATION
  Report Type: Report from Study
  Country: US (occurrence: US)
  Receive Date: 20170607
  Receipt Date: 20170607
  Transmission Date: 20170830
  Serious: Yes (Hospitalization)
  Sender: FDA-Public Use
  Company Number: US-ROCHE-1916426

PATIENT
  Age: 80 Year
  Sex: Female
  Weight: 86.71 kg

DRUGS (12)
  1. ESBRIET [Suspect]
     Active Substance: PIRFENIDONE
     Route: 048
     Dates: start: 201703, end: 201704
  2. ASPIRIN. [Concomitant]
     Active Substance: ASPIRIN
     Route: 048
  3. CALCIUM D3 [Concomitant]
     Active Substance: CALCIUM\CHOLECALCIFEROL
     Route: 065
  4. VESICARE [Concomitant]
     Active Substance: SOLIFENACIN SUCCINATE
     Route: 065
  5. VERAPAMIL [Concomitant]
     Active Substance: VERAPAMIL HYDROCHLORIDE
     Route: 048
  6. NASONEX [Concomitant]
     Active Substance: MOMETASONE FUROATE
     Route: 065
  7. ANASTROZOLE. [Concomitant]
     Active Substance: ANASTROZOLE
     Route: 065
  8. BONVIVA [Concomitant]
     Active Substance: IBANDRONATE SODIUM
     Route: 065
  9. ESBRIET [Suspect]
     Active Substance: PIRFENIDONE
     Indication: IDIOPATHIC PULMONARY FIBROSIS
     Dosage: TAKING 3 CAPSULES 3 TIMES PER DAY
     Route: 048
     Dates: start: 20170312
  10. PAROXETINE. [Concomitant]
     Active Substance: PAROXETINE
     Route: 048
  11. PEPCID (UNITED STATES) [Concomitant]
     Indication: GASTROOESOPHAGEAL REFLUX DISEASE
     Route: 048
  12. ATORVASTATIN [Concomitant]
     Active Substance: ATORVASTATIN
     Route: 048

REACTIONS (13)
  - Myasthenia gravis [Recovered/Resolved with Sequelae]
  - Decreased appetite [Unknown]
  - Dysgeusia [Unknown]
  - Abdominal discomfort [Recovered/Resolved with Sequelae]
  - Vomiting [Recovered/Resolved]
  - Asthenia [Not Recovered/Not Resolved]
  - Dysphagia [Recovered/Resolved]
  - Decreased appetite [Not Recovered/Not Resolved]
  - Headache [Recovered/Resolved with Sequelae]
  - Diplopia [Unknown]
  - Body height decreased [Not Recovered/Not Resolved]
  - Fatigue [Not Recovered/Not Resolved]
  - Sinus disorder [Recovered/Resolved with Sequelae]

NARRATIVE: CASE EVENT DATE: 201704
